FAERS Safety Report 12542467 (Version 1)
Quarter: 2016Q3

REPORT INFORMATION
  Report Type: Spontaneous
  Country: IT (occurrence: IT)
  Receive Date: 20160708
  Receipt Date: 20160708
  Transmission Date: 20161109
  Serious: Yes (Death)
  Sender: FDA-Public Use
  Company Number: IT-CIPLA LTD.-2013IT00578

PATIENT

DRUGS (3)
  1. EPIRUBICIN [Suspect]
     Active Substance: EPIRUBICIN
     Indication: CERVIX CARCINOMA STAGE II
     Dosage: 100 MG/M2, FREE RUNNING INFUSION, DAY 1 OF 3 WEEKLY CYCLES UPTO
     Route: 042
  2. CISPLATIN. [Suspect]
     Active Substance: CISPLATIN
     Indication: CERVIX CARCINOMA STAGE II
     Dosage: 100 MG/M2, 2HOUR INFUSION, DAY 1 OF 3 WEEKLY CYCLE
     Route: 042
  3. PACLITAXEL. [Suspect]
     Active Substance: PACLITAXEL
     Indication: CERVIX CARCINOMA STAGE II
     Dosage: 175 MG/M2, 3 HOUR INFUSION, DAY 1 OF 3 WEEKLY CYCLE
     Route: 042

REACTIONS (1)
  - Cardiovascular disorder [Fatal]
